FAERS Safety Report 19258391 (Version 7)
Quarter: 2021Q3

REPORT INFORMATION
  Report Type: Report from Study
  Country: FR (occurrence: FR)
  Receive Date: 20210514
  Receipt Date: 20210714
  Transmission Date: 20211014
  Serious: Yes (Death, Hospitalization)
  Sender: FDA-Public Use
  Company Number: FR-ROCHE-2812834

PATIENT
  Age: 63 Year
  Sex: Male
  Weight: 98.6 kg

DRUGS (22)
  1. TIRAGOLUMAB. [Suspect]
     Active Substance: TIRAGOLUMAB
     Indication: NON-SMALL CELL LUNG CANCER
     Dosage: ON 07/APR/2021, THE PATIENT RECEIVED MOST RECENT DOSE PRIOR TO SAE
     Route: 042
     Dates: start: 20210407
  2. ATEZOLIZUMAB. [Suspect]
     Active Substance: ATEZOLIZUMAB
     Indication: NON-SMALL CELL LUNG CANCER
     Dosage: ON 07/APR/2021, THE PATIENT RECEIVED MOST RECENT DOSE PRIOR TO SAE
     Route: 041
     Dates: start: 20210407
  3. ACTISKENAN [Concomitant]
     Active Substance: MORPHINE SULFATE
     Route: 048
     Dates: start: 202102
  4. MOVENTIG [Concomitant]
     Active Substance: NALOXEGOL OXALATE
     Indication: CONSTIPATION
     Route: 048
     Dates: start: 20210304
  5. SOLU?MEDROL [Concomitant]
     Active Substance: METHYLPREDNISOLONE SODIUM SUCCINATE
     Indication: COLITIS
     Route: 042
     Dates: start: 20210415, end: 20210415
  6. NORADRENALINE [Concomitant]
     Active Substance: NOREPINEPHRINE
     Indication: SEPTIC SHOCK
     Dosage: DOSE: PRN UNKNOWN
     Route: 042
     Dates: start: 20210506, end: 20210511
  7. VITAMIN B12 [Concomitant]
     Active Substance: CYANOCOBALAMIN
     Indication: PREMEDICATION
     Dates: start: 20210307
  8. FOLIC ACID. [Concomitant]
     Active Substance: FOLIC ACID
     Indication: PREMEDICATION
     Dates: start: 20210307
  9. EUPANTOL [Concomitant]
     Active Substance: PANTOPRAZOLE SODIUM
     Indication: GASTROOESOPHAGEAL REFLUX PROPHYLAXIS
     Dates: start: 20210304
  10. SOLU?MEDROL [Concomitant]
     Active Substance: METHYLPREDNISOLONE SODIUM SUCCINATE
     Dates: start: 20210414, end: 20210414
  11. DUPHALAC [Concomitant]
     Active Substance: LACTULOSE
     Indication: CONSTIPATION
     Dates: start: 20210304
  12. ACTISKENAN [Concomitant]
     Active Substance: MORPHINE SULFATE
     Indication: CHEST PAIN
     Route: 048
     Dates: start: 202102
  13. NORADRENALINE [Concomitant]
     Active Substance: NOREPINEPHRINE
     Indication: RENAL FAILURE
     Dosage: DOSE PRN OTHER
     Route: 042
     Dates: start: 20210423, end: 20210426
  14. PEMETREXED. [Suspect]
     Active Substance: PEMETREXED
     Indication: NON-SMALL CELL LUNG CANCER
     Dosage: ON 07/APR/2021, THE PATIENT RECEIVED MOST RECENT DOSE 1075 MG PRIOR TO SAE.
     Route: 042
     Dates: start: 20210407
  15. DIFFU K [Concomitant]
     Active Substance: POTASSIUM CHLORIDE
     Indication: PROPHYLAXIS
     Route: 048
     Dates: start: 20210308
  16. DOLIPRANE [Concomitant]
     Active Substance: ACETAMINOPHEN
     Indication: PAIN
     Dates: start: 20210303
  17. PHOSPHONEUROS [Concomitant]
     Active Substance: CALCIUM PHOSPHATE, DIBASIC, ANHYDROUS\MAGNESIUM GLYCEROPHOSPHATE\PHOSPHORIC ACID\SODIUM PHOSPHATE, DIBASIC
     Indication: PROPHYLAXIS
     Dates: start: 20210322
  18. CARBOPLATIN. [Suspect]
     Active Substance: CARBOPLATIN
     Indication: NON-SMALL CELL LUNG CANCER
     Dosage: DOSE OF AREA UNDER THE CONCENTRATION?TIME CURVE (AUC) OF 5 (AS PER PROTOCOL).?ON 07/APR/2021, THE PA
     Route: 042
     Dates: start: 20210407
  19. NEFOPAM [Concomitant]
     Active Substance: NEFOPAM
     Indication: CHEST PAIN
     Dosage: 3 AMPULE
     Route: 030
     Dates: start: 20210304
  20. SOLU?MEDROL [Concomitant]
     Active Substance: METHYLPREDNISOLONE SODIUM SUCCINATE
     Route: 042
     Dates: start: 20210416, end: 20210425
  21. SKENAN [Concomitant]
     Active Substance: MORPHINE SULFATE
     Indication: CHEST PAIN
     Dates: start: 202102
  22. NACL [Concomitant]
     Active Substance: SODIUM CHLORIDE
     Route: 042
     Dates: start: 20210414

REACTIONS (2)
  - Colitis [Fatal]
  - Febrile neutropenia [Recovered/Resolved]

NARRATIVE: CASE EVENT DATE: 20210414
